FAERS Safety Report 9729808 (Version 3)
Quarter: 2015Q3

REPORT INFORMATION
  Report Type: Spontaneous
  Country: US (occurrence: US)
  Receive Date: 20131204
  Receipt Date: 20150804
  Transmission Date: 20151125
  Serious: No
  Sender: FDA-Public Use
  Company Number: US-GILEAD-2009-0020944

PATIENT
  Age: 63 Year
  Sex: Male
  Weight: 88.45 kg

DRUGS (14)
  1. COREG CR [Concomitant]
     Active Substance: CARVEDILOL PHOSPHATE
  2. LASIX [Concomitant]
     Active Substance: FUROSEMIDE
  3. SINGULAIR [Concomitant]
     Active Substance: MONTELUKAST SODIUM
  4. PREVACID [Concomitant]
     Active Substance: LANSOPRAZOLE
  5. ADVAIR HFA [Concomitant]
     Active Substance: FLUTICASONE PROPIONATE\SALMETEROL XINAFOATE
  6. ALBUTEROL. [Concomitant]
     Active Substance: ALBUTEROL
  7. LOVASTATIN. [Concomitant]
     Active Substance: LOVASTATIN
  8. SPIRIVA [Concomitant]
     Active Substance: TIOTROPIUM BROMIDE MONOHYDRATE
  9. LETAIRIS [Suspect]
     Active Substance: AMBRISENTAN
     Indication: PULMONARY ARTERIAL HYPERTENSION
     Route: 048
     Dates: start: 20090305
  10. TYLENOL [Concomitant]
     Active Substance: ACETAMINOPHEN
  11. PRILOSEC [Concomitant]
     Active Substance: OMEPRAZOLE MAGNESIUM
  12. PRINIVIL [Concomitant]
     Active Substance: LISINOPRIL
  13. VENTOLIN [Concomitant]
     Active Substance: ALBUTEROL SULFATE
  14. GLUCOPHAGE [Concomitant]
     Active Substance: METFORMIN HYDROCHLORIDE

REACTIONS (3)
  - Nasal congestion [Unknown]
  - Peripheral swelling [Unknown]
  - Dyspnoea [Unknown]
